FAERS Safety Report 7505012 (Version 2)
Quarter: 2013Q1

REPORT INFORMATION
  Report Type: Spontaneous
  Country: US (occurrence: US)
  Receive Date: 20100728
  Receipt Date: 20130103
  Transmission Date: 20140127
  Serious: Yes (Hospitalization)
  Sender: FDA-Public Use
  Company Number: US-BAYER-201028701NA

PATIENT
  Age: 25 Year
  Sex: Female
  Weight: 83.9 kg

DRUGS (3)
  1. YASMIN [Suspect]
     Dosage: UNK
     Dates: start: 20080606, end: 200811
  2. OCELLA [Suspect]
     Dosage: UNK
     Dates: start: 20080606, end: 200811
  3. PROVERA [Concomitant]
     Indication: CONTRACEPTION
     Dosage: 10 MG, 1 TABLET A DAY FOR 7 DAYS
     Route: 048

REACTIONS (3)
  - Pulmonary embolism [None]
  - Pulmonary embolism [None]
  - Deep vein thrombosis [None]
